FAERS Safety Report 8518771-1 (Version None)
Quarter: 2012Q3

REPORT INFORMATION
  Report Type: 
  Country: None (occurrence: None)
  Receive Date: 20120718
  Receipt Date: 20120713
  Transmission Date: 20120928
  Serious: Yes (Other)
  Sender: FDA-Public Use
  Company Number: PHHY2010CA09409

PATIENT
  Sex: Male

DRUGS (2)
  1. ZOLADEX [Concomitant]
  2. SANDOSTATIN LAR [Suspect]
     Indication: CARCINOID TUMOUR
     Dosage: 30 MG, QMO
     Route: 030
     Dates: start: 20100216

REACTIONS (11)
  - BLOOD PRESSURE SYSTOLIC INCREASED [None]
  - CONTUSION [None]
  - MALAISE [None]
  - NAUSEA [None]
  - WEIGHT DECREASED [None]
  - FALL [None]
  - DIARRHOEA [None]
  - DYSURIA [None]
  - DECREASED APPETITE [None]
  - PROSTATIC OBSTRUCTION [None]
  - FATIGUE [None]
